FAERS Safety Report 19846504 (Version 1)
Quarter: 2021Q3

REPORT INFORMATION
  Report Type: Spontaneous
  Country: JP (occurrence: JP)
  Receive Date: 20210917
  Receipt Date: 20210917
  Transmission Date: 20211014
  Serious: Yes (Other)
  Sender: FDA-Public Use
  Company Number: JP-ASTRAZENECA-2021A664388

PATIENT
  Age: 630 Month
  Sex: Male

DRUGS (7)
  1. TRAZENTA [Concomitant]
     Active Substance: LINAGLIPTIN
  2. OLMESARTAN [Concomitant]
     Active Substance: OLMESARTAN
  3. MAINTATE [Concomitant]
     Active Substance: BISOPROLOL FUMARATE
  4. BRONUCK [Concomitant]
     Active Substance: BROMFENAC SODIUM
  5. ADONA [Concomitant]
  6. LOKELMA [Suspect]
     Active Substance: SODIUM ZIRCONIUM CYCLOSILICATE
     Route: 048
     Dates: start: 20210713, end: 20210827
  7. KALLIDINOGENASE [Concomitant]
     Active Substance: KALLIDINOGENASE

REACTIONS (2)
  - Blood pressure increased [Unknown]
  - Oedema [Unknown]

NARRATIVE: CASE EVENT DATE: 202107
